FAERS Safety Report 10097522 (Version 1)
Quarter: 2014Q2

REPORT INFORMATION
  Report Type: Spontaneous
  Country: BR (occurrence: BR)
  Receive Date: 20140423
  Receipt Date: 20140423
  Transmission Date: 20141212
  Serious: Yes (Hospitalization)
  Sender: FDA-Public Use
  Company Number: BR-BIOGENIDEC-2014BI037601

PATIENT
  Age: 46 Year
  Sex: Female

DRUGS (23)
  1. TYSABRI [Suspect]
     Indication: MULTIPLE SCLEROSIS
     Route: 042
     Dates: start: 20120227
  2. PANTOZOL [Concomitant]
  3. LEVOID [Concomitant]
  4. DIGESAN [Concomitant]
  5. LACTULONA [Concomitant]
  6. NUJOL [Concomitant]
  7. LUFTAL [Concomitant]
  8. DIOVAN [Concomitant]
  9. OSCAL D [Concomitant]
  10. METAMUCIL [Concomitant]
  11. SERTRALINE [Concomitant]
  12. MANTIDAN [Concomitant]
  13. PETEMIC (NOS) [Concomitant]
  14. COMPLEX B [Concomitant]
  15. MUVINOR [Concomitant]
  16. STILNOX [Concomitant]
  17. DONAREM [Concomitant]
  18. SELOZOC [Concomitant]
  19. RIVROTRIL [Concomitant]
  20. NOVALGINA [Concomitant]
  21. DRAMAMINE [Concomitant]
  22. B6 [Concomitant]
  23. CYCLOPHOSPHAMIDE [Concomitant]

REACTIONS (3)
  - Intestinal obstruction [Recovered/Resolved]
  - Faecaloma [Recovered/Resolved]
  - Gastrointestinal hypomotility [Unknown]
